FAERS Safety Report 11570605 (Version 8)
Quarter: 2016Q3

REPORT INFORMATION
  Report Type: Report from Study
  Country: CA (occurrence: CA)
  Receive Date: 20150929
  Receipt Date: 20160811
  Transmission Date: 20161109
  Serious: Yes (Hospitalization)
  Sender: FDA-Public Use
  Company Number: CA-TAKEDA-2015TUS013124

PATIENT
  Age: 51 Year
  Sex: Male
  Weight: 84 kg

DRUGS (7)
  1. VEDOLIZUMAB [Suspect]
     Active Substance: VEDOLIZUMAB
     Indication: COLITIS ULCERATIVE
     Dosage: 300 MG, Q8WEEKS
     Route: 042
     Dates: start: 20150625
  2. PENTASA [Concomitant]
     Active Substance: MESALAMINE
     Dosage: 1 G, BID
     Route: 048
     Dates: start: 20140320
  3. DEXAMETHASONE. [Suspect]
     Active Substance: DEXAMETHASONE
     Indication: PREMEDICATION
     Dosage: 20 MG, UNK
     Route: 042
  4. PREDNISONE. [Concomitant]
     Active Substance: PREDNISONE
     Dosage: UNK
  5. DEXAMETHASONE. [Suspect]
     Active Substance: DEXAMETHASONE
     Dosage: 30 MG, UNK
  6. PENTASA [Concomitant]
     Active Substance: MESALAMINE
     Dosage: 100 MG, BID
     Dates: start: 20140320
  7. PENTASA [Concomitant]
     Active Substance: MESALAMINE
     Dosage: 4 G, UNK
     Dates: start: 201403

REACTIONS (8)
  - Hypoaesthesia [Recovered/Resolved]
  - Paraesthesia [Recovered/Resolved]
  - Dehydration [Recovered/Resolved]
  - Asthenia [Recovered/Resolved]
  - Muscular weakness [Recovered/Resolved]
  - Blood potassium decreased [Recovering/Resolving]
  - Flushing [Recovered/Resolved]
  - Blood glucose increased [Recovering/Resolving]

NARRATIVE: CASE EVENT DATE: 20150709
